FAERS Safety Report 23584691 (Version 2)
Quarter: 2024Q1

REPORT INFORMATION
  Report Type: Spontaneous
  Country: US (occurrence: None)
  Receive Date: 20240301
  Receipt Date: 20240328
  Transmission Date: 20240410
  Serious: No
  Sender: FDA-Public Use
  Company Number: 2024A050339

PATIENT
  Sex: Female

DRUGS (1)
  1. SYMBICORT [Suspect]
     Active Substance: BUDESONIDE\FORMOTEROL FUMARATE DIHYDRATE
     Dosage: 160 UG/INHAL
     Route: 055

REACTIONS (8)
  - Limb discomfort [Unknown]
  - Malaise [Unknown]
  - Decreased activity [Unknown]
  - Hypersensitivity [Unknown]
  - Wrong technique in device usage process [Unknown]
  - Device use issue [Unknown]
  - Device difficult to use [Unknown]
  - Device malfunction [Unknown]
